FAERS Safety Report 8914599 (Version 1)
Quarter: 2012Q4

REPORT INFORMATION
  Report Type: Report from Study
  Country: GB (occurrence: GB)
  Receive Date: 20121119
  Receipt Date: 20121119
  Transmission Date: 20130627
  Serious: Yes (Hospitalization)
  Sender: FDA-Public Use
  Company Number: GB-NOVOPROD-352646

PATIENT
  Age: 74 Year
  Sex: Male
  Weight: 111 kg

DRUGS (15)
  1. LIRAGLUTIDE FLEXPEN [Suspect]
     Indication: TYPE 2 DIABETES MELLITUS
     Dosage: 1.8 mg, qd
     Route: 058
     Dates: start: 20110923
  2. METFORMIN [Concomitant]
     Indication: TYPE 2 DIABETES MELLITUS
     Dosage: 1000 mg, qd
     Dates: start: 20040723
  3. GTN [Concomitant]
     Dosage: UNK, prn
  4. CLOPIDOGREL [Concomitant]
     Dosage: 75 mg, qd
  5. BISOPROLOL                         /00802602/ [Concomitant]
     Dosage: 5 mg, qd
  6. QUININE SULPHATE [Concomitant]
     Dosage: 200 mg, qd
  7. ASPIRIN [Concomitant]
     Dosage: 75 mg, qd
  8. ATORVASTATIN [Concomitant]
     Dosage: 40 mg, qd
  9. LANSOPRAZOLE [Concomitant]
     Dosage: 30 mg, bid
  10. FUROSEMIDE [Concomitant]
     Dosage: 40 mg, qd
  11. PAROXETINE [Concomitant]
     Dosage: 10 mg, qd
  12. NICORANDIL [Concomitant]
     Dosage: 30 mg, bid
  13. ISOSORBIDE MONONITRATE [Concomitant]
     Dosage: 20 mg, bid
  14. AMLODIPINE [Concomitant]
     Dosage: 5 mg, qd
  15. PERINDOPRIL [Concomitant]
     Dosage: 4 mg, qd

REACTIONS (1)
  - Angina pectoris [Recovered/Resolved]
